FAERS Safety Report 9644055 (Version 2)
Quarter: 2014Q2

REPORT INFORMATION
  Report Type: Spontaneous
  Country: LB (occurrence: None)
  Receive Date: 20131023
  Receipt Date: 20140623
  Transmission Date: 20141212
  Serious: Yes (Other)
  Sender: FDA-Public Use
  Company Number: SYM-2013-11862

PATIENT
  Age: 45 Year
  Sex: Female

DRUGS (10)
  1. 5 FU [Suspect]
     Indication: COLORECTAL CANCER
     Route: 040
     Dates: start: 20130727, end: 20130727
  2. IRINOTECAN [Suspect]
     Indication: COLORECTAL CANCER
     Route: 042
     Dates: start: 20130727, end: 20130727
  3. LEUCOVORIN [Suspect]
     Indication: COLORECTAL CANCER
     Route: 042
     Dates: start: 20130727, end: 20130727
  4. AFLIBERCEPT [Suspect]
     Indication: COLORECTAL CANCER
     Route: 042
     Dates: start: 20130726, end: 20130726
  5. DOMPERIDONE (DOMPERIDONE) [Concomitant]
  6. GASTRIMUT (OMEPRAZOLE) [Concomitant]
  7. ZANTAC (RANITIDINE HYDROCHLORIDE) [Concomitant]
  8. KYTRIL (GRANISETRON HYDROCHLORIDE) [Concomitant]
  9. ATROPINE (ATROPINE SULFATE) [Concomitant]
  10. SOLUMEDROL (METHYLPREDNISOLONE SODIUM SUCCINATE) [Concomitant]

REACTIONS (3)
  - Hypertension [None]
  - Blood bilirubin increased [None]
  - Biliary dilatation [None]
